FAERS Safety Report 6954233-0 (Version None)
Quarter: 2010Q3

REPORT INFORMATION
  Report Type: 
  Country: None (occurrence: None)
  Receive Date: 20100829
  Receipt Date: 20100707
  Transmission Date: 20110219
  Serious: No
  Sender: FDA-Public Use
  Company Number: US-ABBOTT-10P-163-0656457-00

PATIENT
  Sex: Male
  Weight: 74.91 kg

DRUGS (3)
  1. NIASPAN [Suspect]
     Indication: LOW DENSITY LIPOPROTEIN INCREASED
     Route: 048
     Dates: start: 20100301
  2. MUCINEX [Suspect]
     Indication: RESPIRATORY TRACT CONGESTION
     Dates: start: 20100706
  3. DILTIAZEM [Concomitant]
     Indication: ATRIAL FIBRILLATION
     Dates: start: 20100301

REACTIONS (4)
  - FEELING HOT [None]
  - FLUSHING [None]
  - INCREASED BRONCHIAL SECRETION [None]
  - RESPIRATORY TRACT CONGESTION [None]
